FAERS Safety Report 24817720 (Version 1)
Quarter: 2025Q1

REPORT INFORMATION
  Report Type: Report from Study
  Country: BR (occurrence: BR)
  Receive Date: 20250108
  Receipt Date: 20250108
  Transmission Date: 20250409
  Serious: Yes (Hospitalization)
  Sender: BIOGEN
  Company Number: BR-BIOGEN-2025BI01296006

PATIENT
  Sex: Male
  Weight: 70 kg

DRUGS (1)
  1. TYSABRI [Suspect]
     Active Substance: NATALIZUMAB
     Indication: Multiple sclerosis
     Route: 050
     Dates: start: 20230120

REACTIONS (4)
  - Multiple sclerosis relapse [Unknown]
  - Cough [Unknown]
  - Myalgia [Unknown]
  - Speech disorder [Not Recovered/Not Resolved]
